FAERS Safety Report 5124945-2 (Version None)
Quarter: 2006Q3

REPORT INFORMATION
  Report Type: 
  Country: None (occurrence: None)
  Receive Date: 20060822
  Receipt Date: 20060619
  Transmission Date: 20061208
  Serious: No
  Sender: FDA-Public Use
  Company Number: PHEH2006US08003

PATIENT
  Age: 63 Year
  Sex: Female

DRUGS (1)
  1. ENABLEX [Suspect]
     Indication: HYPERTONIC BLADDER
     Dosage: 7.5 MG , QD
     Dates: start: 20060613, end: 20060614

REACTIONS (2)
  - ERYTHEMA [None]
  - FLUSHING [None]
